FAERS Safety Report 4716966-6 (Version None)
Quarter: 2005Q3

REPORT INFORMATION
  Report Type: 
  Country: None (occurrence: None)
  Receive Date: 20050714
  Receipt Date: 20050629
  Transmission Date: 20060218
  Serious: Yes (Hospitalization)
  Sender: FDA-Public Use
  Company Number: 2005-01425

PATIENT
  Age: 61 Year
  Sex: Male

DRUGS (2)
  1. VELCADE [Suspect]
     Indication: MULTIPLE MYELOMA
     Dosage: INTRAVENOUS
     Route: 042
     Dates: start: 20050601, end: 20050601
  2. THALIIDOMIDE [Concomitant]

REACTIONS (9)
  - ASTHENIA [None]
  - BLADDER DISORDER [None]
  - COMPRESSION FRACTURE [None]
  - CONDITION AGGRAVATED [None]
  - DELIRIUM [None]
  - DYSPNOEA [None]
  - HAEMATURIA [None]
  - PNEUMONIA [None]
  - URINARY RETENTION [None]
